FAERS Safety Report 14551917 (Version 3)
Quarter: 2018Q2

REPORT INFORMATION
  Report Type: Spontaneous
  Country: US (occurrence: US)
  Receive Date: 20180220
  Receipt Date: 20180425
  Transmission Date: 20180711
  Serious: Yes (Hospitalization, Other)
  Sender: FDA-Public Use
  Company Number: US-PFIZER INC-2018069294

PATIENT
  Age: 69 Year
  Sex: Male

DRUGS (1)
  1. MYLOTARG [Suspect]
     Active Substance: GEMTUZUMAB OZOGAMICIN
     Indication: ACUTE MYELOID LEUKAEMIA
     Dosage: DAY 1, 4, 7 (4.5 MG)
     Route: 042
     Dates: start: 20180130, end: 20180205

REACTIONS (5)
  - Fatigue [Unknown]
  - Pyrexia [Unknown]
  - Neutropenia [Unknown]
  - Neoplasm progression [Unknown]
  - Infection [Unknown]

NARRATIVE: CASE EVENT DATE: 20180130
